FAERS Safety Report 9485775 (Version 1)
Quarter: 2013Q3

REPORT INFORMATION
  Report Type: Spontaneous
  Country: US (occurrence: None)
  Receive Date: 20130827
  Receipt Date: 20130827
  Transmission Date: 20140515
  Serious: Yes (Life-Threatening, Hospitalization)
  Sender: FDA-Public Use
  Company Number: None

PATIENT
  Age: 55 Year
  Sex: Male
  Weight: 96.4 kg

DRUGS (2)
  1. DAPTOMYCIN [Suspect]
     Indication: RENAL FAILURE ACUTE
     Dosage: 390MG, OTHER, IV
     Route: 042
     Dates: start: 20130425, end: 20130514
  2. DAPTOMYCIN [Suspect]
     Indication: RHABDOMYOLYSIS
     Dosage: 390MG, OTHER, IV
     Route: 042
     Dates: start: 20130425, end: 20130514

REACTIONS (2)
  - Renal failure acute [None]
  - Rhabdomyolysis [None]
